FAERS Safety Report 8481093-1 (Version None)
Quarter: 2012Q3

REPORT INFORMATION
  Report Type: 
  Country: None (occurrence: None)
  Receive Date: 20120702
  Receipt Date: 20120627
  Transmission Date: 20120928
  Serious: Yes (Other)
  Sender: FDA-Public Use
  Company Number: PHHY2012IL055228

PATIENT
  Age: 63 Year
  Sex: Male

DRUGS (2)
  1. SUNITINIB MALATE [Concomitant]
     Dosage: UNK
  2. PAMIDRONATE DISODIUM [Suspect]
     Indication: METASTASES TO BONE
     Dosage: UNK

REACTIONS (6)
  - OSTEONECROSIS OF JAW [None]
  - NASAL POLYPS [None]
  - SLEEP APNOEA SYNDROME [None]
  - OROANTRAL FISTULA [None]
  - BONE LESION [None]
  - EPISTAXIS [None]
